FAERS Safety Report 20977022 (Version 1)
Quarter: 2022Q2

REPORT INFORMATION
  Report Type: Spontaneous
  Country: US (occurrence: US)
  Receive Date: 20220617
  Receipt Date: 20220617
  Transmission Date: 20220721
  Serious: Yes (Other)
  Sender: FDA-Public Use
  Company Number: US-BRISTOL-MYERS SQUIBB COMPANY-2022-054313

PATIENT
  Age: 56 Year
  Sex: Male
  Weight: 72.5 kg

DRUGS (4)
  1. OPDIVO [Suspect]
     Active Substance: NIVOLUMAB
     Indication: Metastatic renal cell carcinoma
     Route: 065
     Dates: start: 2018
  2. YERVOY [Suspect]
     Active Substance: IPILIMUMAB
     Indication: Metastatic renal cell carcinoma
     Route: 065
     Dates: start: 2018
  3. FOTIVDA [Concomitant]
     Active Substance: TIVOZANIB HYDROCHLORIDE
     Indication: Metastatic renal cell carcinoma
     Route: 065
     Dates: start: 202201
  4. FOTIVDA [Concomitant]
     Active Substance: TIVOZANIB HYDROCHLORIDE

REACTIONS (1)
  - Drug ineffective [Unknown]
